FAERS Safety Report 6955949-2 (Version None)
Quarter: 2010Q3

REPORT INFORMATION
  Report Type: 
  Country: None (occurrence: None)
  Receive Date: 20100826
  Receipt Date: 20100826
  Transmission Date: 20110219
  Serious: Yes (Death, Life-Threatening, Hospitalization)
  Sender: FDA-Public Use
  Company Number: None

PATIENT
  Age: 51 Year
  Sex: Male
  Weight: 103 kg

DRUGS (3)
  1. ABELCET [Suspect]
     Indication: FUNGAL INFECTION
     Dosage: 500MG DAILY IV
     Route: 042
     Dates: start: 20100714, end: 20100725
  2. AMBISOME [Suspect]
     Indication: ACUTE MYELOID LEUKAEMIA
     Dosage: 291MG DAILY IV
     Route: 042
     Dates: start: 20100715, end: 20100720
  3. CYTARABINE [Suspect]
     Dosage: 2 GM VIAL 4000MG

REACTIONS (9)
  - ACUTE RESPIRATORY FAILURE [None]
  - ATRIAL FIBRILLATION [None]
  - COAGULOPATHY [None]
  - DIALYSIS [None]
  - FEBRILE NEUTROPENIA [None]
  - LIVER DISORDER [None]
  - MULTI-ORGAN FAILURE [None]
  - RENAL FAILURE ACUTE [None]
  - SEPTIC SHOCK [None]
